FAERS Safety Report 12001444 (Version 2)
Quarter: 2016Q1

REPORT INFORMATION
  Report Type: Spontaneous
  Country: JP (occurrence: JP)
  Receive Date: 20160204
  Receipt Date: 20160223
  Transmission Date: 20160526
  Serious: Yes (Hospitalization)
  Sender: FDA-Public Use
  Company Number: JP-SA-2016SA018201

PATIENT
  Age: 89 Year
  Sex: Male

DRUGS (4)
  1. REPAGLINIDE. [Interacting]
     Active Substance: REPAGLINIDE
     Route: 048
  2. CLOPIDOGREL BISULFATE. [Suspect]
     Active Substance: CLOPIDOGREL BISULFATE
     Route: 048
  3. TENELIGLIPTIN [Concomitant]
     Active Substance: TENELIGLIPTIN
  4. VOGLIBOSE [Concomitant]
     Active Substance: VOGLIBOSE

REACTIONS (2)
  - Hypoglycaemia [Unknown]
  - Drug interaction [Unknown]
